FAERS Safety Report 14942228 (Version 1)
Quarter: 2018Q2

REPORT INFORMATION
  Report Type: Spontaneous
  Country: CA (occurrence: CA)
  Receive Date: 20180528
  Receipt Date: 20180528
  Transmission Date: 20180711
  Serious: Yes (Death, Other)
  Sender: FDA-Public Use
  Company Number: CA-AXELLIA-001701

PATIENT
  Sex: Male
  Weight: .49 kg

DRUGS (3)
  1. AMPICILLIN [Interacting]
     Active Substance: AMPICILLIN
     Indication: SEPSIS
  2. CEFOTAXIME [Interacting]
     Active Substance: CEFOTAXIME SODIUM
     Indication: SEPSIS
  3. VANCOMYCIN [Suspect]
     Active Substance: VANCOMYCIN
     Indication: SEPSIS
     Route: 042

REACTIONS (2)
  - Drug interaction [Unknown]
  - Multiple organ dysfunction syndrome [Fatal]
